FAERS Safety Report 23638268 (Version 1)
Quarter: 2024Q1

REPORT INFORMATION
  Report Type: Spontaneous
  Country: US (occurrence: None)
  Receive Date: 20240315
  Receipt Date: 20240315
  Transmission Date: 20240410
  Serious: Yes (Hospitalization)
  Sender: FDA-Public Use
  Company Number: None

PATIENT
  Sex: Female

DRUGS (11)
  1. OCREVUS [Suspect]
     Active Substance: OCRELIZUMAB
     Indication: Multiple sclerosis
     Dates: start: 20191231
  2. AMITRIPTYLIN [Concomitant]
  3. BETA-PHOS/AC INJ [Concomitant]
  4. FLUCONAZOLE TAB [Concomitant]
  5. GG/CODEINE SOL [Concomitant]
  6. HYDROCO/APAP [Concomitant]
  7. HYDROROXYZ PAM CAP [Concomitant]
  8. LOSARTAN/HCT TAB [Concomitant]
  9. MELOXICAM TAB 15MG [Concomitant]
  10. MELOXICAM TAB 7.5MG [Concomitant]
  11. METHYLPR ACE INJ [Concomitant]

REACTIONS (3)
  - Bronchitis [None]
  - Pneumonia [None]
  - COVID-19 [None]
